FAERS Safety Report 8140825-2 (Version None)
Quarter: 2012Q1

REPORT INFORMATION
  Report Type: 
  Country: None (occurrence: None)
  Receive Date: 20120216
  Receipt Date: 20120209
  Transmission Date: 20120608
  Serious: Yes (Other)
  Sender: FDA-Public Use
  Company Number: US-JNJFOC-20110800100

PATIENT
  Sex: Female
  Weight: 54.89 kg

DRUGS (3)
  1. CHLORDIAZEPOXIDE [Concomitant]
     Route: 048
  2. ULTRAM [Suspect]
     Indication: PAIN
     Dosage: EVERY 4 HOURS
     Route: 048
     Dates: start: 20120105
  3. ULTRAM [Suspect]
     Dosage: EVERY 4 HOURS
     Route: 048
     Dates: start: 19980101

REACTIONS (7)
  - CONSTIPATION [None]
  - FEAR [None]
  - PHANTOM PAIN [None]
  - ADVERSE DRUG REACTION [None]
  - FEELING COLD [None]
  - ADVERSE EVENT [None]
  - MUSCLE SPASMS [None]
